FAERS Safety Report 9068522 (Version 1)
Quarter: 2013Q1

REPORT INFORMATION
  Report Type: Spontaneous
  Country: US (occurrence: US)
  Receive Date: 20130206
  Receipt Date: 20130206
  Transmission Date: 20140127
  Serious: Yes (Death, Other)
  Sender: FDA-Public Use
  Company Number: US-WATSON-2013-01631

PATIENT
  Sex: Male

DRUGS (1)
  1. HYDROCODONE-ACETAMINOPHEN [Suspect]
     Indication: DRUG ABUSE
     Dosage: UNK, UNKNOWN
     Route: 045

REACTIONS (5)
  - Sinusitis [Fatal]
  - Aspergillus infection [Fatal]
  - Nasal necrosis [Not Recovered/Not Resolved]
  - Drug abuse [Not Recovered/Not Resolved]
  - Drug administered at inappropriate site [Not Recovered/Not Resolved]
